FAERS Safety Report 15215663 (Version 1)
Quarter: 2018Q3

REPORT INFORMATION
  Report Type: Spontaneous
  Country: JP (occurrence: JP)
  Receive Date: 20180730
  Receipt Date: 20180730
  Transmission Date: 20181010
  Serious: Yes (Other)
  Sender: FDA-Public Use
  Company Number: JP-PFIZER INC-2018297666

PATIENT
  Age: 51 Year
  Sex: Male

DRUGS (1)
  1. VFEND [Suspect]
     Active Substance: VORICONAZOLE
     Indication: MENINGITIS CRYPTOCOCCAL
     Dosage: 150 MG, 2X/DAY
     Dates: start: 20180518

REACTIONS (3)
  - Ileus [Unknown]
  - Renal impairment [Unknown]
  - Decreased appetite [Unknown]

NARRATIVE: CASE EVENT DATE: 20180714
